FAERS Safety Report 9085289 (Version 1)
Quarter: 2013Q1

REPORT INFORMATION
  Report Type: Spontaneous
  Country: MX (occurrence: MX)
  Receive Date: 20130218
  Receipt Date: 20130218
  Transmission Date: 20140127
  Serious: Yes (Other)
  Sender: FDA-Public Use
  Company Number: PHHY2013MX014762

PATIENT
  Age: 3 Year
  Sex: Male

DRUGS (2)
  1. TRILEPTAL [Suspect]
     Indication: EPILEPSY
     Dosage: UNK
     Route: 048
     Dates: start: 201202
  2. VALPROATE MAGNESIUM [Concomitant]
     Dosage: UNK
     Dates: start: 201002

REACTIONS (1)
  - Neoplasm [Not Recovered/Not Resolved]
